FAERS Safety Report 10558435 (Version 1)
Quarter: 2014Q4

REPORT INFORMATION
  Report Type: Spontaneous
  Country: US (occurrence: US)
  Receive Date: 20141031
  Receipt Date: 20141031
  Transmission Date: 20150529
  Serious: Yes (Death, Other)
  Sender: FDA-Public Use
  Company Number: US-ABBVIE-14P-163-1301489-00

PATIENT
  Age: 50 Year
  Sex: Male

DRUGS (1)
  1. ANDROGEL [Suspect]
     Active Substance: TESTOSTERONE
     Indication: PRODUCT USED FOR UNKNOWN INDICATION
     Route: 065
     Dates: start: 20120101, end: 20121030

REACTIONS (5)
  - Pain [Unknown]
  - Injury [Unknown]
  - Economic problem [Unknown]
  - Myocardial infarction [Fatal]
  - Emotional distress [Unknown]

NARRATIVE: CASE EVENT DATE: 20121030
